FAERS Safety Report 10633832 (Version 2)
Quarter: 2015Q1

REPORT INFORMATION
  Report Type: Spontaneous
  Country: US (occurrence: US)
  Receive Date: 20141205
  Receipt Date: 20150316
  Transmission Date: 20150720
  Serious: No
  Sender: FDA-Public Use
  Company Number: US-ASTELLAS-2014US017787

PATIENT
  Age: 63 Year
  Sex: Male

DRUGS (1)
  1. XTANDI [Suspect]
     Active Substance: ENZALUTAMIDE
     Indication: PROSTATE CANCER
     Route: 048
     Dates: start: 20141021

REACTIONS (7)
  - Bone pain [Unknown]
  - Myalgia [Unknown]
  - Incorrect product storage [Unknown]
  - Prostatic specific antigen increased [Unknown]
  - Sinus disorder [Unknown]
  - Appetite disorder [Unknown]
  - Nausea [Unknown]

NARRATIVE: CASE EVENT DATE: 20141114
